FAERS Safety Report 7879904-3 (Version None)
Quarter: 2011Q4

REPORT INFORMATION
  Report Type: 
  Country: None (occurrence: None)
  Receive Date: 20111101
  Receipt Date: 20111025
  Transmission Date: 20120403
  Serious: Yes (Hospitalization)
  Sender: FDA-Public Use
  Company Number: JP-PFIZER INC-2011250036

PATIENT
  Age: 75 Year
  Sex: Female
  Weight: 53.3 kg

DRUGS (5)
  1. SCOPOLAMINE [Suspect]
     Dosage: UNK
  2. IMATINIB [Suspect]
     Dosage: 100 MG/DAY THREE TIMES PER WEEK
  3. IMATINIB [Suspect]
     Indication: CHRONIC MYELOID LEUKAEMIA
     Dosage: 400 MG/DAY THREE TIMES PER WEEK
     Dates: start: 20011201
  4. FLUMAZENIL [Suspect]
     Dosage: UNK
  5. MIDAZOLAM [Concomitant]

REACTIONS (1)
  - AGRANULOCYTOSIS [None]
